FAERS Safety Report 6823231-X (Version None)
Quarter: 2010Q3

REPORT INFORMATION
  Report Type: 
  Country: None (occurrence: None)
  Receive Date: 20100708
  Receipt Date: 20100628
  Transmission Date: 20110219
  Serious: Yes (Hospitalization)
  Sender: FDA-Public Use
  Company Number: DE-ALEXION-A201000216

PATIENT

DRUGS (7)
  1. SOLIRIS [Suspect]
     Indication: PAROXYSMAL NOCTURNAL HAEMOGLOBINURIA
     Dosage: 600 MG, BIWEEKLY
     Route: 042
     Dates: start: 20090506
  2. SOLIRIS [Suspect]
     Dosage: 900 MG, BIWEEKLY
     Route: 042
     Dates: end: 20100210
  3. SOLIRIS [Suspect]
     Dosage: 600 MG, QW
     Dates: start: 20100422, end: 20100513
  4. SOLIRIS [Suspect]
     Dosage: 900 MG, Q2W
     Dates: start: 20100520
  5. FOLSAN [Concomitant]
     Indication: PAROXYSMAL NOCTURNAL HAEMOGLOBINURIA
     Dosage: 5 MG, UNK
     Route: 048
     Dates: start: 20090201
  6. CLEXANE [Concomitant]
     Indication: PAROXYSMAL NOCTURNAL HAEMOGLOBINURIA
     Dosage: UNK
     Route: 058
     Dates: start: 20090201, end: 20100401
  7. CLEXANE [Concomitant]
     Indication: PREGNANCY

REACTIONS (2)
  - ABORTION SPONTANEOUS [None]
  - PREGNANCY [None]
